FAERS Safety Report 11840124 (Version 1)
Quarter: 2015Q4

REPORT INFORMATION
  Report Type: Spontaneous
  Country: US (occurrence: None)
  Receive Date: 20151215
  Receipt Date: 20151215
  Transmission Date: 20160305
  Serious: Yes (Other)
  Sender: FDA-Public Use
  Company Number: None

PATIENT
  Age: 39 Year
  Sex: Female

DRUGS (8)
  1. METHYLPREDNISOLONE. [Concomitant]
     Active Substance: METHYLPREDNISOLONE
  2. NOVAREL [Concomitant]
     Active Substance: CHORIOGONADOTROPIN ALFA
  3. DOXYCYCLINE. [Concomitant]
     Active Substance: DOXYCYCLINE
  4. FOLIC ACID. [Concomitant]
     Active Substance: FOLIC ACID
  5. MENOPUR [Concomitant]
     Active Substance: FOLLICLE STIMULATING HORMONE BETA POLYPEPTIDE\LUTROPIN ALFA
  6. ENDOMETRIN [Suspect]
     Active Substance: PROGESTERONE
     Indication: INFERTILITY FEMALE
     Route: 042
  7. FOLLISTIM [Concomitant]
     Active Substance: FOLLITROPIN
  8. GANIRELIX [Concomitant]
     Active Substance: GANIRELIX

REACTIONS (1)
  - Rash [None]

NARRATIVE: CASE EVENT DATE: 201512
